FAERS Safety Report 9764181 (Version 2)
Quarter: 2013Q4

REPORT INFORMATION
  Report Type: Report from Study
  Country: CA (occurrence: CA)
  Receive Date: 20131216
  Receipt Date: 20131216
  Transmission Date: 20140711
  Serious: Yes (Death, Other)
  Sender: FDA-Public Use
  Company Number: PHHY2013CA013299

PATIENT
  Age: 71 Year
  Sex: Female

DRUGS (2)
  1. SANDOSTATIN LAR [Suspect]
     Indication: PANCREATIC NEUROENDOCRINE TUMOUR
     Dosage: 20 MG, MONTHLY
     Route: 030
     Dates: start: 20130201
  2. SANDOSTATIN LAR [Suspect]
     Dosage: 10 MG, EVERY 4 WEEKS
     Route: 030
     Dates: end: 20131001

REACTIONS (24)
  - Death [Fatal]
  - Diabetes mellitus [Unknown]
  - Blood glucose decreased [Unknown]
  - General physical health deterioration [Unknown]
  - Malignant neoplasm progression [Unknown]
  - Ascites [Unknown]
  - Gastric disorder [Unknown]
  - Respiratory rate increased [Unknown]
  - Blood pressure systolic increased [Unknown]
  - Blood pressure increased [Unknown]
  - Urinary tract infection [Unknown]
  - Hyperhidrosis [Recovering/Resolving]
  - Back pain [Unknown]
  - Weight decreased [Unknown]
  - Pigmentation disorder [Unknown]
  - Diarrhoea [Unknown]
  - Abdominal distension [Unknown]
  - Abdominal pain upper [Unknown]
  - Headache [Recovering/Resolving]
  - Nausea [Recovering/Resolving]
  - Vomiting [Recovered/Resolved]
  - Malaise [Unknown]
  - Asthenia [Unknown]
  - Drug ineffective [Unknown]
